FAERS Safety Report 24756570 (Version 1)
Quarter: 2024Q4

REPORT INFORMATION
  Report Type: Spontaneous
  Country: CA (occurrence: CA)
  Receive Date: 20241220
  Receipt Date: 20241220
  Transmission Date: 20250115
  Serious: Yes (Other)
  Sender: CSL BEHRING
  Company Number: CA-BEH-2024187499

PATIENT
  Age: 48 Year
  Sex: Female
  Weight: 83 kg

DRUGS (7)
  1. HUMAN C1-ESTERASE INHIBITOR [Suspect]
     Active Substance: HUMAN C1-ESTERASE INHIBITOR
     Indication: Hereditary angioedema with C1 esterase inhibitor deficiency
     Dosage: 500 IU, 3 EVERY 1 WEEK
     Route: 065
  2. HUMAN C1-ESTERASE INHIBITOR [Suspect]
     Active Substance: HUMAN C1-ESTERASE INHIBITOR
     Indication: Prophylaxis
     Dosage: 5000 IU, 2 EVERY 1 WEEK
     Route: 058
  3. HUMAN C1-ESTERASE INHIBITOR [Suspect]
     Active Substance: HUMAN C1-ESTERASE INHIBITOR
     Dosage: 500 IU, 2 EVERY 1 WEEK
     Route: 058
  4. HUMAN C1-ESTERASE INHIBITOR [Suspect]
     Active Substance: HUMAN C1-ESTERASE INHIBITOR
     Dosage: 5000 IU, 2 EVERY 1 WEEK
     Route: 058
  5. ABILIFY [Concomitant]
     Active Substance: ARIPIPRAZOLE
  6. LITHIUM ASPARTATE [Concomitant]
     Active Substance: LITHIUM ASPARTATE
  7. MIRABEGRON [Concomitant]
     Active Substance: MIRABEGRON

REACTIONS (3)
  - Abdominal distension [Recovered/Resolved]
  - Hereditary angioedema [Recovered/Resolved]
  - Underdose [Recovered/Resolved]
